FAERS Safety Report 23088735 (Version 1)
Quarter: 2023Q4

REPORT INFORMATION
  Report Type: Spontaneous
  Country: SE (occurrence: None)
  Receive Date: 20231020
  Receipt Date: 20231020
  Transmission Date: 20240109
  Serious: Yes (Life-Threatening, Hospitalization)
  Sender: FDA-Public Use
  Company Number: 2023A235632

PATIENT
  Age: 84 Year
  Sex: Female
  Weight: 54 kg

DRUGS (15)
  1. DAPAGLIFLOZIN [Suspect]
     Active Substance: DAPAGLIFLOZIN
     Indication: Cardiac failure
     Dosage: 1X1
     Route: 048
     Dates: start: 20211111, end: 20231008
  2. LEVOTHYROXINE SODIUM [Concomitant]
     Active Substance: LEVOTHYROXINE SODIUM
     Dosage: 1X1
     Route: 048
     Dates: start: 20230220
  3. SPIRIVA RESPIMAT [Concomitant]
     Active Substance: TIOTROPIUM BROMIDE
     Dosage: 1X1
     Route: 055
     Dates: start: 20230208
  4. ENTRESTO [Concomitant]
     Active Substance: SACUBITRIL\VALSARTAN
     Dosage: 1X2
     Route: 048
     Dates: start: 20221017
  5. BETOLVEX [Concomitant]
     Dosage: 1X1
     Route: 048
     Dates: start: 20210129
  6. BISOPROLOL [Concomitant]
     Active Substance: BISOPROLOL\BISOPROLOL FUMARATE
     Dosage: 1.5X1
     Route: 048
     Dates: start: 20191212
  7. CALCIUM CARBONATE\CHOLECALCIFEROL [Concomitant]
     Active Substance: CALCIUM CARBONATE\CHOLECALCIFEROL
     Dosage: 1X1
     Route: 048
     Dates: start: 20230726
  8. ABASAGLAR KWIKPEN [Concomitant]
     Dosage: 22 E P? MORGONEN
     Route: 058
     Dates: start: 20230724
  9. ELIQUIS [Concomitant]
     Active Substance: APIXABAN
     Dosage: 1X2
     Route: 048
     Dates: start: 20221014
  10. NATRIUMBIKARBONAT MEDA [Concomitant]
     Dosage: 1G, 1X1
     Route: 048
     Dates: start: 20210607
  11. SIMVASTATIN [Concomitant]
     Active Substance: SIMVASTATIN
     Dosage: 1X1
     Route: 048
     Dates: start: 20151205
  12. EZETIMIB KRKA [Concomitant]
     Dosage: 1X1
     Route: 048
     Dates: start: 20220826
  13. ACETYLCYSTEIN 1A FARMA [Concomitant]
     Dosage: 1X1
     Route: 048
     Dates: start: 20160323
  14. FUROSEMIDE [Concomitant]
     Active Substance: FUROSEMIDE
     Dosage: 1X1
     Route: 048
     Dates: start: 20230802
  15. BUDESONIDE\FORMOTEROL FUMARATE [Concomitant]
     Active Substance: BUDESONIDE\FORMOTEROL FUMARATE
     Dosage: 1X2
     Route: 055
     Dates: start: 20230208

REACTIONS (2)
  - Ketoacidosis [Recovering/Resolving]
  - Laryngeal oedema [Not Recovered/Not Resolved]

NARRATIVE: CASE EVENT DATE: 20231008
